FAERS Safety Report 21141649 (Version 3)
Quarter: 2022Q3

REPORT INFORMATION
  Report Type: Report from Study
  Country: BR (occurrence: BR)
  Receive Date: 20220728
  Receipt Date: 20220823
  Transmission Date: 20221027
  Serious: Yes (Death, Hospitalization, Other)
  Sender: FDA-Public Use
  Company Number: BR-TAKEDA-2021TUS074072

PATIENT
  Age: 40 Year
  Sex: Male
  Weight: 73.85 kg

DRUGS (2)
  1. MOBOCERTINIB [Suspect]
     Active Substance: MOBOCERTINIB
     Indication: Lung adenocarcinoma
     Dosage: 160 MILLIGRAM, QD
     Route: 065
     Dates: start: 20210218, end: 20220618
  2. MOBOCERTINIB [Suspect]
     Active Substance: MOBOCERTINIB
     Dosage: 120 MILLIGRAM, QD
     Route: 065

REACTIONS (12)
  - Adverse event [Fatal]
  - Transient ischaemic attack [Unknown]
  - Status epilepticus [Unknown]
  - Hydrocephalus [Unknown]
  - Partial seizures [Unknown]
  - Metastases to central nervous system [Unknown]
  - Meningitis [Unknown]
  - Diarrhoea [Unknown]
  - Cognitive disorder [Unknown]
  - Executive dysfunction [Unknown]
  - Ataxia [Unknown]
  - General physical health deterioration [Unknown]

NARRATIVE: CASE EVENT DATE: 20220610
